FAERS Safety Report 5283283-8 (Version None)
Quarter: 2007Q1

REPORT INFORMATION
  Report Type: 
  Country: None (occurrence: None)
  Receive Date: 20070329
  Receipt Date: 20070329
  Transmission Date: 20070707
  Serious: Yes (Death)
  Sender: FDA-Public Use
  Company Number: None

PATIENT
  Age: 50 Year
  Sex: Male
  Weight: 83.9154 kg

DRUGS (3)
  1. SERTRALINE HCL 25MG GENERIC FOR ZOLOFT [Suspect]
     Indication: DEPRESSION
     Dosage: 25MG 1X PER DAY PO
     Route: 048
     Dates: start: 20070314, end: 20070322
  2. SERTRALINE HCL 25MG GENERIC FOR ZOLOFT [Suspect]
     Indication: INSOMNIA
     Dosage: 25MG 1X PER DAY PO
     Route: 048
     Dates: start: 20070314, end: 20070322
  3. SERTRALINE HCL 25MG GENERIC FOR ZOLOFT [Suspect]
     Indication: STRESS
     Dosage: 25MG 1X PER DAY PO
     Route: 048
     Dates: start: 20070314, end: 20070322

REACTIONS (8)
  - COMPLETED SUICIDE [None]
  - CONFUSIONAL STATE [None]
  - DIARRHOEA [None]
  - HYPERHIDROSIS [None]
  - INSOMNIA [None]
  - MOOD ALTERED [None]
  - SUICIDAL IDEATION [None]
  - TREMOR [None]
